FAERS Safety Report 4302492-5 (Version None)
Quarter: 2004Q1

REPORT INFORMATION
  Report Type: 
  Country: None (occurrence: None)
  Receive Date: 20040218
  Receipt Date: 20040113
  Transmission Date: 20041129
  Serious: Yes (Hospitalization, Other)
  Sender: FDA-Public Use
  Company Number: PHEH2003US08137

PATIENT
  Age: 63 Year
  Sex: Male
  Weight: 112.5 kg

DRUGS (11)
  1. DIOVAN [Suspect]
     Dosage: 160 MG, QD, ORAL
     Route: 048
     Dates: start: 20030401, end: 20030717
  2. DIOVAN [Suspect]
     Dosage: 160 MG, QD, ORAL
     Route: 048
     Dates: start: 20030721, end: 20030825
  3. AVANDIA [Concomitant]
  4. LASIX [Concomitant]
  5. NIASPAN [Concomitant]
  6. METOPROLOL [Concomitant]
  7. CARDIZEM [Concomitant]
  8. ALLOPURINOL [Concomitant]
  9. IMDUR [Concomitant]
  10. NEURONTIN [Concomitant]
  11. XANAX [Concomitant]

REACTIONS (6)
  - BLOOD CREATININE INCREASED [None]
  - BLOOD UREA INCREASED [None]
  - FATIGUE [None]
  - OEDEMA PERIPHERAL [None]
  - RENAL FAILURE [None]
  - WEIGHT INCREASED [None]
